FAERS Safety Report 6108157-1 (Version None)
Quarter: 2009Q1

REPORT INFORMATION
  Report Type: 
  Country: None (occurrence: None)
  Receive Date: 20090305
  Receipt Date: 20090305
  Transmission Date: 20090719
  Serious: Yes (Hospitalization)
  Sender: FDA-Public Use
  Company Number: None

PATIENT
  Sex: Female
  Weight: 63 kg

DRUGS (2)
  1. CARBOPLATIN [Suspect]
     Dosage: 305 MG
     Dates: end: 20090206
  2. TAXOL [Suspect]
     Dosage: 296 MG
     Dates: end: 20090206

REACTIONS (9)
  - DEHYDRATION [None]
  - FEBRILE NEUTROPENIA [None]
  - FEMALE GENITAL TRACT FISTULA [None]
  - GASTROINTESTINAL STOMA COMPLICATION [None]
  - HYPONATRAEMIA [None]
  - HYPOVOLAEMIA [None]
  - INTESTINAL ANASTOMOSIS COMPLICATION [None]
  - NEUTROPHIL COUNT DECREASED [None]
  - PRODUCTIVE COUGH [None]
